FAERS Safety Report 25612469 (Version 3)
Quarter: 2025Q3

REPORT INFORMATION
  Report Type: Report from Study
  Country: CA (occurrence: CA)
  Receive Date: 20250728
  Receipt Date: 20250820
  Transmission Date: 20251020
  Serious: Yes (Other)
  Sender: TAKEDA
  Company Number: CA-TAKEDA-2018TUS002888

PATIENT
  Age: 74 Year
  Sex: Female

DRUGS (35)
  1. VEDOLIZUMAB [Suspect]
     Active Substance: VEDOLIZUMAB
     Indication: Crohn^s disease
  2. VEDOLIZUMAB [Suspect]
     Active Substance: VEDOLIZUMAB
     Dosage: 300 MILLIGRAM, Q4WEEKS
     Dates: start: 20161012
  3. VEDOLIZUMAB [Suspect]
     Active Substance: VEDOLIZUMAB
     Dosage: 300 MILLIGRAM, Q4WEEKS
  4. VEDOLIZUMAB [Suspect]
     Active Substance: VEDOLIZUMAB
     Dosage: 300 MILLIGRAM, Q4WEEKS
  5. VEDOLIZUMAB [Suspect]
     Active Substance: VEDOLIZUMAB
     Dosage: 300 MILLIGRAM, Q4WEEKS
  6. VEDOLIZUMAB [Suspect]
     Active Substance: VEDOLIZUMAB
     Dosage: 300 MILLIGRAM, Q4WEEKS
  7. VEDOLIZUMAB [Suspect]
     Active Substance: VEDOLIZUMAB
     Dosage: 300 MILLIGRAM, Q4WEEKS
  8. VEDOLIZUMAB [Suspect]
     Active Substance: VEDOLIZUMAB
     Dosage: 300 MILLIGRAM, Q4WEEKS
  9. VEDOLIZUMAB [Suspect]
     Active Substance: VEDOLIZUMAB
     Dosage: 300 MILLIGRAM, Q4WEEKS
  10. PANTOPRAZOLE SODIUM [Suspect]
     Active Substance: PANTOPRAZOLE SODIUM
     Indication: Product used for unknown indication
  11. ATENOLOL [Concomitant]
     Active Substance: ATENOLOL
  12. ATACAND [Concomitant]
     Active Substance: CANDESARTAN CILEXETIL
  13. NORVASC [Concomitant]
     Active Substance: AMLODIPINE BESYLATE
  14. ACETAMINOPHEN [Concomitant]
     Active Substance: ACETAMINOPHEN
     Indication: Premedication
  15. Gen-indapamide [Concomitant]
  16. APIXABAN [Concomitant]
     Active Substance: APIXABAN
  17. ASCORBIC ACID [Concomitant]
     Active Substance: ASCORBIC ACID
  18. LIPITOR [Concomitant]
     Active Substance: ATORVASTATIN CALCIUM
  19. BISOPROLOL [Concomitant]
     Active Substance: BISOPROLOL
  20. SYMBICORT [Concomitant]
     Active Substance: BUDESONIDE\FORMOTEROL FUMARATE DIHYDRATE
  21. CALCIUM [Concomitant]
     Active Substance: CALCIUM
  22. B12 [Concomitant]
  23. FOLIC ACID [Concomitant]
     Active Substance: FOLIC ACID
  24. METHOTREXATE [Concomitant]
     Active Substance: METHOTREXATE
  25. POTASSIUM [Concomitant]
     Active Substance: POTASSIUM
  26. PREGABALIN [Concomitant]
     Active Substance: PREGABALIN
  27. VITAMIN D [Concomitant]
     Active Substance: VITAMIN D NOS
  28. MAGNESIUM OXIDE [Concomitant]
     Active Substance: MAGNESIUM OXIDE
  29. ZINC [Concomitant]
     Active Substance: ZINC
  30. ENTOCORT [Concomitant]
     Active Substance: BUDESONIDE
  31. PULMICORT TURBUHALER [Concomitant]
     Active Substance: BUDESONIDE
  32. BRICANYL [Concomitant]
     Active Substance: TERBUTALINE SULFATE
  33. SPIRIVA [Concomitant]
     Active Substance: TIOTROPIUM BROMIDE MONOHYDRATE
  34. METFORMIN [Concomitant]
     Active Substance: METFORMIN HYDROCHLORIDE
  35. INSULIN NOS [Concomitant]
     Active Substance: INSULIN NOS

REACTIONS (13)
  - Wound infection fungal [Recovered/Resolved]
  - Clostridium difficile infection [Unknown]
  - Skin infection [Unknown]
  - Skin laceration [Unknown]
  - Foot deformity [Unknown]
  - Staphylococcal infection [Unknown]
  - Skin abrasion [Not Recovered/Not Resolved]
  - Furuncle [Unknown]
  - Blister [Not Recovered/Not Resolved]
  - Dermatitis [Unknown]
  - Cellulitis [Unknown]
  - Inappropriate schedule of product administration [Unknown]
  - Eczema [Not Recovered/Not Resolved]

NARRATIVE: CASE EVENT DATE: 20171001
